FAERS Safety Report 4731873-0 (Version None)
Quarter: 2005Q3

REPORT INFORMATION
  Report Type: 
  Country: None (occurrence: None)
  Receive Date: 20050802
  Receipt Date: 20050802
  Transmission Date: 20060218
  Serious: Yes (Life-Threatening, Other)
  Sender: FDA-Public Use
  Company Number: None

PATIENT
  Age: 15 Year
  Sex: Male
  Weight: 63.5036 kg

DRUGS (4)
  1. PAXIL [Suspect]
     Indication: ANXIETY DISORDER
     Dosage: 40MG ONCE DAILY ORAL
     Route: 048
  2. PAXIL [Suspect]
     Indication: DEPRESSION
     Dosage: 40MG ONCE DAILY ORAL
     Route: 048
  3. PAXIL [Suspect]
     Indication: PANIC DISORDER
     Dosage: 40MG ONCE DAILY ORAL
     Route: 048
  4. PAXIL [Suspect]
     Indication: STRESS
     Dosage: 40MG ONCE DAILY ORAL
     Route: 048

REACTIONS (7)
  - ABNORMAL DREAMS [None]
  - ANGER [None]
  - DRUG WITHDRAWAL SYNDROME [None]
  - INSOMNIA [None]
  - IRRITABILITY [None]
  - SHOCK [None]
  - SUICIDAL IDEATION [None]
